FAERS Safety Report 20556522 (Version 1)
Quarter: 2022Q1

REPORT INFORMATION
  Report Type: Spontaneous
  Country: US (occurrence: US)
  Receive Date: 20220307
  Receipt Date: 20220307
  Transmission Date: 20220424
  Serious: No
  Sender: FDA-Public Use
  Company Number: US-TEVA-2022-US-2005868

PATIENT
  Age: 64 Year
  Sex: Male

DRUGS (6)
  1. TRAMADOL [Suspect]
     Active Substance: TRAMADOL
     Route: 065
  2. OXYCODONE HYDROCHLORIDE [Suspect]
     Active Substance: OXYCODONE HYDROCHLORIDE
     Route: 065
  3. CODEINE [Suspect]
     Active Substance: CODEINE
     Route: 065
  4. MORPHINE [Suspect]
     Active Substance: MORPHINE
     Route: 065
  5. HYDROCODONE [Suspect]
     Active Substance: HYDROCODONE
     Route: 065
  6. AUSTEDO [Concomitant]
     Active Substance: DEUTETRABENAZINE
     Dosage: 12 MILLIGRAM DAILY;
     Route: 048
     Dates: start: 20220103

REACTIONS (1)
  - Drug hypersensitivity [Unknown]
